FAERS Safety Report 6781055-6 (Version None)
Quarter: 2010Q2

REPORT INFORMATION
  Report Type: 
  Country: None (occurrence: None)
  Receive Date: 20100621
  Receipt Date: 20100615
  Transmission Date: 20101027
  Serious: Yes (Death)
  Sender: FDA-Public Use
  Company Number: BR-BRACCO-000037

PATIENT
  Age: 62 Year
  Sex: Female

DRUGS (1)
  1. IOPAMIDOL [Suspect]
     Indication: DRUG USE FOR UNKNOWN INDICATION
     Route: 065
     Dates: start: 20100609, end: 20100609

REACTIONS (3)
  - DEATH [None]
  - ERYTHEMA [None]
  - UPPER AIRWAY OBSTRUCTION [None]
